FAERS Safety Report 8083619-9 (Version None)
Quarter: 2012Q1

REPORT INFORMATION
  Report Type: 
  Country: None (occurrence: None)
  Receive Date: 20120127
  Receipt Date: 20110216
  Transmission Date: 20120608
  Serious: No
  Sender: FDA-Public Use
  Company Number: US-ABBOTT-11P-163-0701034-00

PATIENT
  Sex: Female
  Weight: 79.45 kg

DRUGS (2)
  1. METHOTREXATE [Suspect]
     Indication: PRODUCT USED FOR UNKNOWN INDICATION
  2. HUMIRA [Suspect]
     Indication: RHEUMATOID ARTHRITIS
     Route: 058
     Dates: start: 20060101, end: 20110101

REACTIONS (8)
  - HEPATIC ENZYME INCREASED [None]
  - NAUSEA [None]
  - HEPATIC CYST [None]
  - MUSCULOSKELETAL STIFFNESS [None]
  - ULTRASOUND KIDNEY ABNORMAL [None]
  - RENAL CYST [None]
  - ULTRASOUND LIVER ABNORMAL [None]
  - LIVER FUNCTION TEST ABNORMAL [None]
